FAERS Safety Report 22168241 (Version 2)
Quarter: 2023Q2

REPORT INFORMATION
  Report Type: Spontaneous
  Country: US (occurrence: US)
  Receive Date: 20230403
  Receipt Date: 20230512
  Transmission Date: 20230721
  Serious: No
  Sender: FDA-Public Use
  Company Number: US-PFIZER INC-PV202300060390

PATIENT
  Age: 84 Year
  Sex: Female

DRUGS (1)
  1. NURTEC ODT [Suspect]
     Active Substance: RIMEGEPANT SULFATE
     Dosage: 75 MG, ALTERNATE DAY (PLACE 1 TABLET ON OR UNDER THE TONGUE EVERY OTHER DAY)
     Route: 048

REACTIONS (2)
  - Vision blurred [Unknown]
  - Nausea [Unknown]
